FAERS Safety Report 11780557 (Version 3)
Quarter: 2016Q4

REPORT INFORMATION
  Report Type: Spontaneous
  Country: US (occurrence: US)
  Receive Date: 20151126
  Receipt Date: 20161004
  Transmission Date: 20170206
  Serious: Yes (Other)
  Sender: FDA-Public Use
  Company Number: US-AMGEN-USASP2015123944

PATIENT
  Age: 71 Year
  Sex: Female
  Weight: 62.4 kg

DRUGS (7)
  1. XGEVA [Suspect]
     Active Substance: DENOSUMAB
     Indication: BREAST CANCER STAGE IV
     Dosage: Q4WK
     Route: 065
     Dates: start: 20150204, end: 20150408
  2. VITAMIN B6 [Concomitant]
     Active Substance: PYRIDOXINE HYDROCHLORIDE
     Dosage: 100 MG, UNK
     Route: 048
  3. ARMOUR THYROID [Concomitant]
     Active Substance: THYROID, PORCINE
     Dosage: 105 MG, UNK
     Route: 048
  4. OMEGA 3                            /01333901/ [Concomitant]
     Active Substance: FISH OIL\TOCOPHEROL
     Route: 048
  5. FULVESTRANT [Suspect]
     Active Substance: FULVESTRANT
     Indication: PRODUCT USED FOR UNKNOWN INDICATION
     Dosage: UNK UNK, Q4WK
     Route: 058
     Dates: start: 20150211, end: 20150603
  6. PERIDEX                            /00016001/ [Concomitant]
     Active Substance: DEXAMETHASONE
     Route: 048
  7. DOXORUBICIN [Suspect]
     Active Substance: DOXORUBICIN
     Indication: PRODUCT USED FOR UNKNOWN INDICATION
     Dosage: UNK
     Route: 065

REACTIONS (4)
  - Tumour marker increased [Recovering/Resolving]
  - Osteonecrosis of jaw [Not Recovered/Not Resolved]
  - Body height decreased [Unknown]
  - Tooth infection [Unknown]

NARRATIVE: CASE EVENT DATE: 20150408
